FAERS Safety Report 10208847 (Version 3)
Quarter: 2014Q2

REPORT INFORMATION
  Report Type: Report from Study
  Country: DE (occurrence: DE)
  Receive Date: 20140530
  Receipt Date: 20140606
  Transmission Date: 20141212
  Serious: Yes (Hospitalization)
  Sender: FDA-Public Use
  Company Number: DE-TEVA-481249GER

PATIENT
  Age: 75 Year
  Sex: Male
  Weight: 110 kg

DRUGS (25)
  1. LONQUEX [Suspect]
     Indication: NEUTROPENIA
     Dates: start: 20140416
  2. 5-FU MEDAC [Suspect]
     Route: 042
     Dates: start: 20140401, end: 20140415
  3. 5-FU MEDAC [Suspect]
     Dates: start: 20140502
  4. AVASTIN [Suspect]
     Route: 042
     Dates: start: 20140401, end: 20140415
  5. AVASTIN [Suspect]
     Dates: start: 20140502
  6. ONCOFOLIC [Suspect]
     Route: 042
     Dates: start: 20140401, end: 20140415
  7. ONCOFOLIC [Suspect]
     Dates: start: 20140502
  8. IRINOTECAN MEDAC [Suspect]
     Dosage: 25.7143 MILLIGRAM DAILY;
     Route: 042
     Dates: start: 20140401, end: 20140415
  9. IRINOTECAN MEDAC [Suspect]
     Route: 042
     Dates: start: 20140502
  10. VALSARTAN [Concomitant]
     Indication: HYPERTENSION
     Dosage: 80 MILLIGRAM DAILY;
     Route: 048
  11. TROMCARDIN COMPLEX [Concomitant]
     Indication: CORONARY ARTERY DISEASE
     Route: 048
  12. ASS [Concomitant]
     Indication: CORONARY ARTERY DISEASE
     Dosage: 100 MILLIGRAM DAILY;
  13. ACTRAPID [Concomitant]
     Indication: DIABETES MELLITUS
     Route: 058
  14. ACTRAPHANE [Concomitant]
     Indication: DIABETES MELLITUS
     Dosage: 20 IU (INTERNATIONAL UNIT) DAILY;
     Route: 058
  15. ACTRAPHANE [Concomitant]
     Dosage: 40 IU (INTERNATIONAL UNIT) DAILY;
     Route: 058
  16. NOVALGIN [Concomitant]
     Indication: PAIN
     Route: 048
  17. DILTIAZEM [Concomitant]
     Indication: MUSCLE SPASMS
     Route: 048
  18. TORASEMIDE [Concomitant]
     Indication: FLUID RETENTION
     Route: 048
  19. GRANISETRON [Concomitant]
     Indication: NAUSEA
     Route: 042
     Dates: start: 20140401
  20. GRANISETRON [Concomitant]
     Indication: VOMITING
     Dosage: 2 MILLIGRAM DAILY;
     Route: 048
     Dates: start: 20140416, end: 20140416
  21. DEXAMETHASONE [Concomitant]
     Indication: CHEMOTHERAPY
     Route: 042
     Dates: start: 20140401
  22. DEXAMETHASONE [Concomitant]
     Dosage: 8 MILLIGRAM DAILY;
     Route: 048
     Dates: start: 20140402, end: 20140402
  23. DEXAMETHASONE [Concomitant]
     Dosage: 4 MILLIGRAM DAILY;
     Route: 048
     Dates: start: 20140403, end: 20140403
  24. DEXAMETHASONE [Concomitant]
     Dosage: 8 MILLIGRAM DAILY;
     Route: 048
     Dates: start: 20140416, end: 20140416
  25. DEXAMETHASONE [Concomitant]
     Dosage: 4 MILLIGRAM DAILY;
     Route: 048
     Dates: start: 20140417, end: 20140417

REACTIONS (10)
  - Venous thrombosis [Recovered/Resolved]
  - Urinary tract infection [Recovered/Resolved]
  - Pseudomonas test positive [Recovered/Resolved]
  - Dehydration [Recovered/Resolved]
  - Leukopenia [Recovered/Resolved]
  - Aphasia [Recovered/Resolved]
  - Apathy [Recovered/Resolved]
  - Rib fracture [Recovered/Resolved]
  - Fall [Recovered/Resolved]
  - Mesenteric vein thrombosis [None]
